FAERS Safety Report 8951445 (Version 2)
Quarter: 2013Q1

REPORT INFORMATION
  Report Type: Spontaneous
  Country: GB (occurrence: None)
  Receive Date: 20121129
  Receipt Date: 20130110
  Transmission Date: 20140127
  Serious: Yes (Disabling, Other)
  Sender: FDA-Public Use
  Company Number: AUR-APL-2012-05008

PATIENT
  Age: 70 Year
  Sex: Female

DRUGS (1)
  1. ALENDRONIC ACID (ALENDRONIC ACID) [Suspect]
     Indication: OSTEOPOROSIS
     Route: 048

REACTIONS (7)
  - Osteonecrosis of jaw [None]
  - Hypophagia [None]
  - Weight decreased [None]
  - Gait disturbance [None]
  - Pain [None]
  - Discomfort [None]
  - Emotional distress [None]
